FAERS Safety Report 26167628 (Version 2)
Quarter: 2025Q4

REPORT INFORMATION
  Report Type: Spontaneous
  Country: MX (occurrence: MX)
  Receive Date: 20251217
  Receipt Date: 20251222
  Transmission Date: 20260118
  Serious: Yes (Death, Other)
  Sender: Kenvue
  Company Number: MX-KENVUE-20251204555

PATIENT
  Age: 53 Year

DRUGS (2)
  1. ACETAMINOPHEN [Suspect]
     Active Substance: ACETAMINOPHEN
     Indication: Product used for unknown indication
     Dosage: UNKNOWN AMOUNT
     Route: 061
  2. CLONAZEPAM [Suspect]
     Active Substance: CLONAZEPAM
     Indication: Product used for unknown indication
     Dosage: UNKNOWN AMOUNT
     Route: 061

REACTIONS (6)
  - Hepatotoxicity [Fatal]
  - Gastric haemorrhage [Fatal]
  - Shock [Fatal]
  - Metabolic acidosis [Fatal]
  - Nervous system disorder [Fatal]
  - Drug level increased [Fatal]
